FAERS Safety Report 7441688-0 (Version None)
Quarter: 2011Q2

REPORT INFORMATION
  Report Type: 
  Country: None (occurrence: None)
  Receive Date: 20110428
  Receipt Date: 20100910
  Transmission Date: 20111010
  Serious: No
  Sender: FDA-Public Use
  Company Number: A0880659A

PATIENT
  Age: 44 Year
  Sex: Male

DRUGS (2)
  1. NO CONCURRENT MEDICATION [Concomitant]
  2. AMERGE [Suspect]
     Indication: MIGRAINE
     Dosage: 1MG AS REQUIRED
     Route: 048
     Dates: start: 20100901, end: 20100901

REACTIONS (2)
  - LIP SWELLING [None]
  - ORAL PAIN [None]
